FAERS Safety Report 22310829 (Version 2)
Quarter: 2023Q2

REPORT INFORMATION
  Report Type: Spontaneous
  Country: GB (occurrence: GB)
  Receive Date: 20230511
  Receipt Date: 20230609
  Transmission Date: 20230722
  Serious: Yes (Life-Threatening, Hospitalization, Other)
  Sender: FDA-Public Use
  Company Number: None

PATIENT
  Age: 3 Year
  Sex: Male
  Weight: 14.5 kg

DRUGS (4)
  1. EPIPEN JR [Suspect]
     Active Substance: EPINEPHRINE
     Indication: Anaphylactic reaction
     Dosage: 150 MICROGRAM (PRN)
     Route: 030
     Dates: start: 20230418, end: 20230418
  2. EPIPEN JR [Suspect]
     Active Substance: EPINEPHRINE
     Dosage: 150 MICROGRAM (PRN)
     Route: 030
     Dates: start: 20230418, end: 20230418
  3. EPIPEN JR [Suspect]
     Active Substance: EPINEPHRINE
     Dosage: 150 MICROGRAM (PRN)
     Route: 030
     Dates: start: 20230418, end: 20230418
  4. EPIPEN JR [Suspect]
     Active Substance: EPINEPHRINE
     Dosage: 150 MICROGRAM (PRN)
     Route: 030
     Dates: start: 20230418, end: 20230418

REACTIONS (3)
  - Device failure [Unknown]
  - Injury associated with device [Unknown]
  - Needle issue [Unknown]

NARRATIVE: CASE EVENT DATE: 20230418
